FAERS Safety Report 11817159 (Version 2)
Quarter: 2017Q2

REPORT INFORMATION
  Report Type: Spontaneous
  Country: US (occurrence: US)
  Receive Date: 20151210
  Receipt Date: 20170404
  Transmission Date: 20170829
  Serious: No
  Sender: FDA-Public Use
  Company Number: US-JNJFOC-20151105765

PATIENT
  Sex: Male

DRUGS (4)
  1. INVEGA [Suspect]
     Active Substance: PALIPERIDONE
     Indication: ABNORMAL BEHAVIOUR
     Dosage: VARYING DOSES OF 3.0 MG TO 6.0 MG
     Route: 048
     Dates: start: 2007
  2. INVEGA [Suspect]
     Active Substance: PALIPERIDONE
     Indication: DELUSION
     Dosage: VARYING DOSES OF 3.0 MG TO 6.0 MG
     Route: 048
     Dates: start: 2007
  3. INVEGA [Suspect]
     Active Substance: PALIPERIDONE
     Indication: PARANOIA
     Dosage: VARYING DOSES OF 3.0 MG TO 6.0 MG
     Route: 048
     Dates: start: 2007
  4. INVEGA [Suspect]
     Active Substance: PALIPERIDONE
     Indication: BIPOLAR DISORDER
     Dosage: VARYING DOSES OF 3.0 MG TO 6.0 MG
     Route: 048
     Dates: start: 2007

REACTIONS (5)
  - Abnormal weight gain [Unknown]
  - Agitation [Unknown]
  - Gynaecomastia [Unknown]
  - Insomnia [Unknown]
  - Anxiety [Unknown]

NARRATIVE: CASE EVENT DATE: 2009
